FAERS Safety Report 6039211-0 (Version None)
Quarter: 2009Q1

REPORT INFORMATION
  Report Type: 
  Country: None (occurrence: None)
  Receive Date: 20090115
  Receipt Date: 20090108
  Transmission Date: 20090719
  Serious: No
  Sender: FDA-Public Use
  Company Number: US-B.I. PHARMACEUTICALS,INC./RIDGEFIELD-2009-BP-00357BP

PATIENT
  Sex: Male

DRUGS (4)
  1. SPIRIVA [Suspect]
     Indication: BRONCHIAL SECRETION RETENTION
     Dosage: 18MCG
     Route: 055
     Dates: start: 20071101
  2. SIMVASTATIN [Suspect]
     Indication: BLOOD CHOLESTEROL INCREASED
  3. ASPIRIN [Concomitant]
  4. BLOOD PRESSURE PILLS [Concomitant]
     Indication: HYPERTENSION

REACTIONS (3)
  - BRONCHIAL SECRETION RETENTION [None]
  - DRUG INEFFECTIVE [None]
  - DRUG INEFFECTIVE FOR UNAPPROVED INDICATION [None]
